FAERS Safety Report 18766646 (Version 52)
Quarter: 2024Q4

REPORT INFORMATION
  Report Type: Other
  Country: GB (occurrence: GB)
  Receive Date: 20210121
  Receipt Date: 20241119
  Transmission Date: 20250115
  Serious: Yes (Death, Hospitalization, Other)
  Sender: MACLEODS
  Company Number: GB-MACLEODS PHARMACEUTICALS US LTD-MAC2021029839

PATIENT

DRUGS (286)
  1. ARIPIPRAZOLE [Suspect]
     Active Substance: ARIPIPRAZOLE
     Indication: Schizophrenia
     Dosage: 5 MILLIGRAM (POWDER FOR INFUSION)
     Route: 065
  2. ARIPIPRAZOLE [Suspect]
     Active Substance: ARIPIPRAZOLE
     Indication: Schizophrenia
     Dosage: 5 MILLIGRAM
     Route: 048
  3. ARIPIPRAZOLE [Suspect]
     Active Substance: ARIPIPRAZOLE
     Dosage: 5 MILLIGRAM
     Route: 048
  4. ARIPIPRAZOLE [Suspect]
     Active Substance: ARIPIPRAZOLE
     Dosage: 5 MILLIGRAM
     Route: 048
  5. ARIPIPRAZOLE [Suspect]
     Active Substance: ARIPIPRAZOLE
     Dosage: 5 MILLIGRAM
     Route: 048
  6. ARIPIPRAZOLE [Suspect]
     Active Substance: ARIPIPRAZOLE
     Dosage: UNK
     Route: 065
  7. ARIPIPRAZOLE [Suspect]
     Active Substance: ARIPIPRAZOLE
     Dosage: 5 MILLIGRAM, TABLET
     Route: 048
  8. ARIPIPRAZOLE [Suspect]
     Active Substance: ARIPIPRAZOLE
     Dosage: 5 MILLIGRAM
     Route: 048
  9. LEVOFLOXACIN [Suspect]
     Active Substance: LEVOFLOXACIN
     Indication: Febrile neutropenia
     Dosage: 500 MILLIGRAM, QD (CUMULATIVE DOSE: 3000)
     Route: 048
     Dates: start: 20151125
  10. OLANZAPINE [Suspect]
     Active Substance: OLANZAPINE
     Indication: Schizophrenia
     Dosage: 1 MILLIGRAM
     Route: 065
     Dates: start: 20040217
  11. OLANZAPINE [Suspect]
     Active Substance: OLANZAPINE
     Dosage: 10 MILLIGRAM
     Route: 048
  12. OLANZAPINE [Suspect]
     Active Substance: OLANZAPINE
     Dosage: 15 MILLIGRAM
     Route: 048
     Dates: start: 20060704
  13. OLANZAPINE [Suspect]
     Active Substance: OLANZAPINE
     Dosage: UNK
     Route: 048
  14. OLANZAPINE [Suspect]
     Active Substance: OLANZAPINE
     Dosage: 15 MILLIGRAM
     Route: 048
     Dates: start: 20040217
  15. OLANZAPINE [Suspect]
     Active Substance: OLANZAPINE
     Dosage: 2.5 MILLIGRAM
     Route: 048
     Dates: start: 20080823
  16. OLANZAPINE [Suspect]
     Active Substance: OLANZAPINE
     Dosage: 10 MILLIGRAM
     Route: 048
  17. OLANZAPINE [Suspect]
     Active Substance: OLANZAPINE
     Dosage: 10 MILLIGRAM
     Route: 048
  18. OLANZAPINE [Suspect]
     Active Substance: OLANZAPINE
     Dosage: UNK
     Route: 048
  19. OLANZAPINE [Suspect]
     Active Substance: OLANZAPINE
     Dosage: 10 MILLIGRAM
     Route: 048
  20. OLANZAPINE [Suspect]
     Active Substance: OLANZAPINE
     Dosage: UNK
     Route: 065
  21. OLANZAPINE [Suspect]
     Active Substance: OLANZAPINE
     Dosage: 10 MILLIGRAM
     Route: 065
  22. OLANZAPINE [Suspect]
     Active Substance: OLANZAPINE
     Dosage: UNK
     Route: 048
  23. OLANZAPINE [Suspect]
     Active Substance: OLANZAPINE
     Dosage: 10 MILLIGRAM
     Route: 048
  24. HALOPERIDOL [Suspect]
     Active Substance: HALOPERIDOL
     Indication: Schizophrenia
     Dosage: 5 MILLIGRAM, BID, 10 MG QD
     Route: 065
  25. HALOPERIDOL [Suspect]
     Active Substance: HALOPERIDOL
     Dosage: 5 MILLIGRAM, BID, 10 MG QD
     Route: 048
  26. HALOPERIDOL [Suspect]
     Active Substance: HALOPERIDOL
     Dosage: 40 MILLIGRAM, QD
     Route: 048
  27. HALOPERIDOL [Suspect]
     Active Substance: HALOPERIDOL
     Dosage: 10 MILLIGRAM, QD
     Route: 065
  28. HALOPERIDOL [Suspect]
     Active Substance: HALOPERIDOL
     Dosage: 5 MILLIGRAM, QD
     Route: 048
  29. HALOPERIDOL [Suspect]
     Active Substance: HALOPERIDOL
     Dosage: 20 MILLIGRAM, BID (10 MILLIGRAM, BID)
     Route: 048
  30. HALOPERIDOL [Suspect]
     Active Substance: HALOPERIDOL
     Dosage: 10 MILLIGRAM, BID, 20 MG QD
     Route: 065
  31. HALOPERIDOL [Suspect]
     Active Substance: HALOPERIDOL
     Dosage: 10 MILLIGRAM, BID, 20 MG QD
     Route: 065
  32. HALOPERIDOL [Suspect]
     Active Substance: HALOPERIDOL
     Dosage: 10 MILLIGRAM, BID, 20 MG QD
     Route: 065
  33. HALOPERIDOL [Suspect]
     Active Substance: HALOPERIDOL
     Dosage: 20 MILLIGRAM, BID
     Route: 048
  34. HALOPERIDOL [Suspect]
     Active Substance: HALOPERIDOL
     Dosage: 5 MILLIGRAM, BID, 10 MG QD
     Route: 048
  35. HALOPERIDOL [Suspect]
     Active Substance: HALOPERIDOL
     Dosage: 5 MILLIGRAM, BID, 10 MG QD
     Route: 065
  36. HALOPERIDOL [Suspect]
     Active Substance: HALOPERIDOL
     Dosage: 5 MILLIGRAM, BID, 10 MG QD
     Route: 048
  37. HALOPERIDOL [Suspect]
     Active Substance: HALOPERIDOL
     Dosage: 5 MILLIGRAM, BID, 10 MG QD
     Route: 048
  38. HALOPERIDOL [Suspect]
     Active Substance: HALOPERIDOL
     Dosage: 10 MILLIGRAM, BID, 20 MG QD
     Route: 048
  39. HALOPERIDOL [Suspect]
     Active Substance: HALOPERIDOL
     Dosage: 5 MILLIGRAM, BID, 10 MG QD
     Route: 048
  40. HALOPERIDOL [Suspect]
     Active Substance: HALOPERIDOL
     Dosage: 20 MILLIGRAM, BID, 40 MG QD
     Route: 048
  41. CHLORPROMAZINE [Suspect]
     Active Substance: CHLORPROMAZINE
     Indication: Schizophrenia
     Dosage: 75 MILLIGRAM
     Route: 048
  42. CHLORPROMAZINE [Suspect]
     Active Substance: CHLORPROMAZINE
     Dosage: 75 MILLIGRAM
     Route: 048
  43. CHLORPROMAZINE [Suspect]
     Active Substance: CHLORPROMAZINE
     Dosage: 75 MILLIGRAM
     Route: 048
  44. CHLORPROMAZINE [Suspect]
     Active Substance: CHLORPROMAZINE
     Dosage: 75 MILLIGRAM
     Route: 048
  45. CHLORPROMAZINE [Suspect]
     Active Substance: CHLORPROMAZINE
     Dosage: 75 MILLIGRAM
     Route: 048
  46. CHLORPROMAZINE [Suspect]
     Active Substance: CHLORPROMAZINE
     Dosage: 75 MILLIGRAM
     Route: 048
  47. CHLORPROMAZINE [Suspect]
     Active Substance: CHLORPROMAZINE
     Dosage: 75 MILLIGRAM
     Route: 048
  48. CHLORPROMAZINE [Suspect]
     Active Substance: CHLORPROMAZINE
     Dosage: 75 MILLIGRAM
     Route: 048
  49. CHLORPROMAZINE [Suspect]
     Active Substance: CHLORPROMAZINE
     Dosage: 75 MILLIGRAM
     Route: 048
  50. CHLORPROMAZINE [Suspect]
     Active Substance: CHLORPROMAZINE
     Dosage: 75 MILLIGRAM
     Route: 048
  51. CHLORPROMAZINE [Suspect]
     Active Substance: CHLORPROMAZINE
     Dosage: 75 MILLIGRAM
     Route: 048
  52. ACETAMINOPHEN [Suspect]
     Active Substance: ACETAMINOPHEN
     Indication: Pain
     Dosage: 500 MILLIGRAM
     Route: 048
     Dates: start: 20151027
  53. ACETAMINOPHEN [Suspect]
     Active Substance: ACETAMINOPHEN
     Dosage: 10 MILLIGRAM
     Route: 065
     Dates: start: 201509
  54. ACETAMINOPHEN [Suspect]
     Active Substance: ACETAMINOPHEN
     Dosage: 15 MILLIGRAM, QD
     Route: 048
  55. ACETAMINOPHEN [Suspect]
     Active Substance: ACETAMINOPHEN
     Dosage: 500 MILLIGRAM (POWDER FOR INFUSION )
     Route: 065
     Dates: start: 20151027
  56. ACETAMINOPHEN [Suspect]
     Active Substance: ACETAMINOPHEN
     Dosage: 15 MILLIGRAM, QD (TABLET)
     Route: 065
     Dates: start: 201510
  57. ACETAMINOPHEN [Suspect]
     Active Substance: ACETAMINOPHEN
     Dosage: 500 MILLIGRAM (POWDER FOR INFUSION )
     Route: 065
     Dates: start: 20150127
  58. CLOZAPINE [Suspect]
     Active Substance: CLOZAPINE
     Indication: Schizophrenia
     Dosage: 400 MILLIGRAM, QD (POWDER FOR INFUSION)
     Route: 048
     Dates: start: 20201207
  59. CLOZAPINE [Suspect]
     Active Substance: CLOZAPINE
     Indication: Schizophrenia
     Dosage: 200 MILLIGRAM, QD (OFF LABEL USE) (POWDER FOR INFUSION)
     Route: 048
     Dates: start: 20100823
  60. CLOZAPINE [Suspect]
     Active Substance: CLOZAPINE
     Dosage: 300 MILLIGRAM, QD, AT NIGHT, PM (POWDER FOR INFUSION)
     Route: 048
  61. CLOZAPINE [Suspect]
     Active Substance: CLOZAPINE
     Dosage: 200 MILLIGRAM, BID, 400 MG QD (POWDER FOR INFUSION)
     Route: 048
  62. CLOZAPINE [Suspect]
     Active Substance: CLOZAPINE
     Dosage: UNK (POWDER FOR INFUSION)
     Route: 048
     Dates: start: 20191209, end: 20191223
  63. CLOZAPINE [Suspect]
     Active Substance: CLOZAPINE
     Dosage: 400 MILLIGRAM, BID, 800 MG QD (POWDER FOR INFUSION)
     Route: 048
     Dates: start: 20201207
  64. CLOZAPINE [Suspect]
     Active Substance: CLOZAPINE
     Dosage: 245 MILLIGRAM, QD, IN THE MORNING (POWDER FOR INFUSION)
     Route: 048
     Dates: start: 20191223, end: 20191223
  65. CLOZAPINE [Suspect]
     Active Substance: CLOZAPINE
     Dosage: 400 MILLIGRAM, QD (POWDER FOR INFUSION)
     Route: 048
     Dates: start: 20191223, end: 20191223
  66. CLOZAPINE [Suspect]
     Active Substance: CLOZAPINE
     Dosage: 245 MILLIGRAM (POWDER FOR INFUSION)
     Route: 048
     Dates: start: 20200521, end: 2020
  67. CLOZAPINE [Suspect]
     Active Substance: CLOZAPINE
     Dosage: 245 MILLIGRAM (POWDER FOR INFUSION)
     Route: 048
     Dates: start: 20191209, end: 20191223
  68. CLOZAPINE [Suspect]
     Active Substance: CLOZAPINE
     Dosage: 1 DOSAGE FORM, EACH MORNING (POWDER FOR INFUSION)
     Route: 048
     Dates: start: 2011
  69. CLOZAPINE [Suspect]
     Active Substance: CLOZAPINE
     Dosage: 50 MILLIGRAM, QD (POWDER FOR INFUSION)
     Route: 048
  70. CLOZAPINE [Suspect]
     Active Substance: CLOZAPINE
     Dosage: UNK (POWDER FOR INFUSION)
     Route: 048
     Dates: start: 20191223, end: 20191223
  71. CLOZAPINE [Suspect]
     Active Substance: CLOZAPINE
     Dosage: 275 MILLIGRAM, QD, PM (POWDER FOR INFUSION)
     Route: 048
     Dates: start: 20200521, end: 2020
  72. CLOZAPINE [Suspect]
     Active Substance: CLOZAPINE
     Dosage: 100 MILLIGRAM, QD, IN THE MORNING (POWDER FOR INFUSION)
     Route: 048
     Dates: start: 20200521
  73. CLOZAPINE [Suspect]
     Active Substance: CLOZAPINE
     Dosage: 275 MILLIGRAM, QD, AT NIGHT, PM (POWDER FOR INFUSION)
     Route: 048
  74. CLOZAPINE [Suspect]
     Active Substance: CLOZAPINE
     Dosage: 200 MILLIGRAM, BID (POWDER FOR INFUSION)
     Route: 048
     Dates: start: 20191209, end: 20191223
  75. CLOZAPINE [Suspect]
     Active Substance: CLOZAPINE
     Dosage: 200 MILLIGRAM, BID, 400 MG QD ( POWDER FOR INFUSION)
     Route: 048
  76. CLOZAPINE [Suspect]
     Active Substance: CLOZAPINE
     Dosage: 200 MILLIGRAM, BID, 400 MG QD ((POWDER FOR INFUSION)
     Route: 065
  77. CLOZAPINE [Suspect]
     Active Substance: CLOZAPINE
     Dosage: 400 MILLIGRAM, QD (OFF LABEL USE) ((POWDER FOR INFUSION))
     Route: 048
     Dates: start: 20201207
  78. CLOZAPINE [Suspect]
     Active Substance: CLOZAPINE
     Dosage: 300 MILLIGRAM, QD, AT NIGHT, PM (POWDER FOR INFUSION)
     Route: 065
  79. CLOZAPINE [Suspect]
     Active Substance: CLOZAPINE
     Dosage: 300 MILLIGRAM, QD, AT NIGHT, PM (POWDER FOR INFUSION)
     Route: 065
  80. CLOZAPINE [Suspect]
     Active Substance: CLOZAPINE
     Dosage: 200 MILLIGRAM, BID, 400 MG QD (POWDER FOR INFUSION)
     Route: 065
  81. CLOZAPINE [Suspect]
     Active Substance: CLOZAPINE
     Dosage: 50 MILLIGRAM, QD, MIDDAY, TABLET (POWDER FOR INFUSION)
     Route: 065
  82. CLOZAPINE [Suspect]
     Active Substance: CLOZAPINE
     Dosage: 275 MILLIGRAM, QD, AT NIGHT, PM (POWDER FOR INFUSION)
     Route: 065
  83. CLOZAPINE [Suspect]
     Active Substance: CLOZAPINE
     Dosage: 100 MILLIGRAM, QD, IN THE MORNING (POWDER FOR INFUSION)
     Route: 065
  84. CLOZAPINE [Suspect]
     Active Substance: CLOZAPINE
     Dosage: 50 MILLIGRAM, QD, MIDDAY, TABLET (POWDER FOR INFUSION)
     Route: 065
  85. CLOZAPINE [Suspect]
     Active Substance: CLOZAPINE
     Dosage: 275 MILLIGRAM, QD, AT NIGHT, PM (POWDER FOR INFUSION)
     Route: 065
  86. CLOZAPINE [Suspect]
     Active Substance: CLOZAPINE
     Dosage: 50 MILLIGRAM, QD, MIDDAY, TABLET (POWDER FOR INFUSION)
     Route: 065
  87. CLOZAPINE [Suspect]
     Active Substance: CLOZAPINE
     Dosage: UNK (POWDER FOR INFUSION)
     Route: 048
  88. CLOZAPINE [Suspect]
     Active Substance: CLOZAPINE
     Dosage: 275 MILLIGRAM, QD, AT NIGHT, PM (POWDER FOR INFUSION)
     Route: 065
  89. CLOZAPINE [Suspect]
     Active Substance: CLOZAPINE
     Dosage: 200 MILLIGRAM, BID, 400 MG QD (POWDER FOR INFUSION)
     Route: 065
  90. CLOZAPINE [Suspect]
     Active Substance: CLOZAPINE
     Dosage: 245 MILLIGRAM, QD, IN THE MORNING (POWDER FOR INFUSION)
     Route: 065
     Dates: start: 2011
  91. CLOZAPINE [Suspect]
     Active Substance: CLOZAPINE
     Dosage: 200 MILLIGRAM, BID, 400 MG QD (POWDER FOR INFUSION)
     Route: 048
  92. CLOZAPINE [Suspect]
     Active Substance: CLOZAPINE
     Dosage: 100 MILLIGRAM, QD, IN THE MORNING (POWDER FOR INFUSION)
     Route: 065
  93. CLOZAPINE [Suspect]
     Active Substance: CLOZAPINE
     Dosage: 100 MILLIGRAM, QD, IN THE MORNING (POWDER FOR INFUSION)
     Route: 065
  94. CLOZAPINE [Suspect]
     Active Substance: CLOZAPINE
     Dosage: 300 MILLIGRAM, QD, AT NIGHT, PM (POWDER FOR INFUSION)
     Route: 048
  95. CLOZAPINE [Suspect]
     Active Substance: CLOZAPINE
     Dosage: 100 MILLIGRAM, QD, IN THE MORNING (POWDER FOR INFUSION)
     Route: 048
  96. CLOZAPINE [Suspect]
     Active Substance: CLOZAPINE
     Dosage: 200 MILLIGRAM, BID, 400 MG QD (POWDER FOR INFUSION)
     Route: 065
  97. CLOZAPINE [Suspect]
     Active Substance: CLOZAPINE
     Dosage: 300 MILLIGRAM, QD, AT NIGHT, PM (POWDER FOR INFUSION)
     Route: 065
     Dates: start: 20100823
  98. CLOZAPINE [Suspect]
     Active Substance: CLOZAPINE
     Dosage: 200 MILLIGRAM, BID, 400 MG QD (POWDER FOR INFUSION)
     Route: 048
  99. CLOZAPINE [Suspect]
     Active Substance: CLOZAPINE
     Dosage: 50 MILLIGRAM, QD, MIDDAY, (POWDER FOR INFUSION) TABLET
     Route: 048
     Dates: start: 20191209, end: 20191223
  100. CLOZAPINE [Suspect]
     Active Substance: CLOZAPINE
     Dosage: 50 MILLIGRAM, QD, MIDDAY, TABLET (POWDER FOR INFUSION)
     Route: 065
  101. CLOZAPINE [Suspect]
     Active Substance: CLOZAPINE
     Dosage: 100 MILLIGRAM, QD, IN THE MORNING (POWDER FOR INFUSION)
     Route: 065
  102. CLOZAPINE [Suspect]
     Active Substance: CLOZAPINE
     Dosage: 300 MILLIGRAM, QD, AT NIGHT, PM (POWDER FOR INFUSION)
     Route: 065
  103. CLOZAPINE [Suspect]
     Active Substance: CLOZAPINE
     Dosage: 275 MILLIGRAM, QD, AT NIGHT, PM (POWDER FOR INFUSION)
     Route: 065
  104. CLOZAPINE [Suspect]
     Active Substance: CLOZAPINE
     Dosage: 275 MILLIGRAM, QD, AT NIGHT, PM (POWDER FOR INFUSION)
     Route: 065
  105. CLOZAPINE [Suspect]
     Active Substance: CLOZAPINE
     Dosage: 400 MILLIGRAM, BID (POWDER FOR INFUSION)
     Route: 048
  106. CLOZAPINE [Suspect]
     Active Substance: CLOZAPINE
     Dosage: 6000 MILLIGRAM ((POWDER FOR INFUSION))
     Route: 048
     Dates: start: 20201207
  107. CLOZAPINE [Suspect]
     Active Substance: CLOZAPINE
     Dosage: 400 MILLIGRAM, BID ((POWDER FOR INFUSION))
     Route: 048
  108. ZUCLOPENTHIXOL HYDROCHLORIDE [Suspect]
     Active Substance: ZUCLOPENTHIXOL HYDROCHLORIDE
     Indication: Schizophrenia
     Dosage: 400 MILLIGRAM, CYCLIC, BIWEEKLY, INJECTION
     Route: 065
     Dates: start: 20030204, end: 20040217
  109. ZUCLOPENTHIXOL HYDROCHLORIDE [Suspect]
     Active Substance: ZUCLOPENTHIXOL HYDROCHLORIDE
     Dosage: 245 MILLIGRAM, QD
     Route: 048
     Dates: start: 20200521
  110. ZUCLOPENTHIXOL HYDROCHLORIDE [Suspect]
     Active Substance: ZUCLOPENTHIXOL HYDROCHLORIDE
     Dosage: 245 MILLIGRAM, QD
     Route: 048
     Dates: start: 20100823, end: 20200823
  111. ZUCLOPENTHIXOL HYDROCHLORIDE [Suspect]
     Active Substance: ZUCLOPENTHIXOL HYDROCHLORIDE
     Dosage: 800 MILLIGRAM, Q.W.
     Route: 030
     Dates: start: 20041018, end: 20041018
  112. ZUCLOPENTHIXOL HYDROCHLORIDE [Suspect]
     Active Substance: ZUCLOPENTHIXOL HYDROCHLORIDE
     Dosage: 800 MILLIGRAM, Q.W.
     Route: 030
     Dates: start: 20040601, end: 20041018
  113. ZUCLOPENTHIXOL HYDROCHLORIDE [Suspect]
     Active Substance: ZUCLOPENTHIXOL HYDROCHLORIDE
     Dosage: UNK
     Route: 048
     Dates: start: 20200521
  114. ZUCLOPENTHIXOL HYDROCHLORIDE [Suspect]
     Active Substance: ZUCLOPENTHIXOL HYDROCHLORIDE
     Dosage: 400 MILLIGRAM, INJECTION
     Route: 065
     Dates: start: 20040601
  115. ZUCLOPENTHIXOL HYDROCHLORIDE [Suspect]
     Active Substance: ZUCLOPENTHIXOL HYDROCHLORIDE
     Dosage: 300 MILLIGRAM, Q.W
     Route: 065
  116. ZUCLOPENTHIXOL HYDROCHLORIDE [Suspect]
     Active Substance: ZUCLOPENTHIXOL HYDROCHLORIDE
     Dosage: 800 MILLIGRAM, Q.W.
     Route: 030
     Dates: start: 20030204, end: 20040217
  117. ZUCLOPENTHIXOL HYDROCHLORIDE [Suspect]
     Active Substance: ZUCLOPENTHIXOL HYDROCHLORIDE
     Dosage: 300 MILLIGRAM, Q.W., INJECTION (STOP DATE: 18-OCT-2009)
     Route: 030
  118. ZUCLOPENTHIXOL HYDROCHLORIDE [Suspect]
     Active Substance: ZUCLOPENTHIXOL HYDROCHLORIDE
     Dosage: 400 MILLIGRAM (OTHER (BIWEEKLY))
     Route: 030
     Dates: start: 20041018
  119. ZUCLOPENTHIXOL HYDROCHLORIDE [Suspect]
     Active Substance: ZUCLOPENTHIXOL HYDROCHLORIDE
     Dosage: 400 MILLIGRAM (CYCLE) (TWICE A WEEK)
     Route: 030
     Dates: start: 20091018
  120. ZUCLOPENTHIXOL HYDROCHLORIDE [Suspect]
     Active Substance: ZUCLOPENTHIXOL HYDROCHLORIDE
     Dosage: 300 MILLIGRAM, Q.W., INJECTION
     Route: 030
     Dates: start: 20091018
  121. ZUCLOPENTHIXOL HYDROCHLORIDE [Suspect]
     Active Substance: ZUCLOPENTHIXOL HYDROCHLORIDE
     Dosage: 300 MILLIGRAM, QD, INJECTION
     Route: 030
     Dates: start: 20091009
  122. ZUCLOPENTHIXOL HYDROCHLORIDE [Suspect]
     Active Substance: ZUCLOPENTHIXOL HYDROCHLORIDE
     Dosage: 400 MILLIGRAM, CYCLIC, BIWEEKLY, INJECTION
     Route: 065
     Dates: start: 20041018, end: 20041018
  123. ZUCLOPENTHIXOL HYDROCHLORIDE [Suspect]
     Active Substance: ZUCLOPENTHIXOL HYDROCHLORIDE
     Dosage: UNK, INJECTION
     Route: 065
  124. ZUCLOPENTHIXOL HYDROCHLORIDE [Suspect]
     Active Substance: ZUCLOPENTHIXOL HYDROCHLORIDE
     Dosage: 400 MILLIGRAM, CYCLIC, BIWEEKLY, INJECTION
     Route: 065
     Dates: start: 20040601, end: 20041018
  125. ZUCLOPENTHIXOL HYDROCHLORIDE [Suspect]
     Active Substance: ZUCLOPENTHIXOL HYDROCHLORIDE
     Dosage: 400 MILLIGRAM, Q.W., WEEKLY, INJECTION
     Route: 065
     Dates: start: 20040217, end: 20040601
  126. ZUCLOPENTHIXOL HYDROCHLORIDE [Suspect]
     Active Substance: ZUCLOPENTHIXOL HYDROCHLORIDE
     Dosage: 300 MILLIGRAM, Q.W., INJECTION
     Route: 030
     Dates: start: 20091009
  127. ZUCLOPENTHIXOL HYDROCHLORIDE [Suspect]
     Active Substance: ZUCLOPENTHIXOL HYDROCHLORIDE
     Dosage: 400 MILLIGRAM (EVERY WEEK); (STOP DATE: 18-OCT-2004 00:00)
     Route: 030
  128. LITHIUM [Suspect]
     Active Substance: LITHIUM
     Indication: Product used for unknown indication
     Dosage: UNK
     Route: 065
  129. LITHIUM [Suspect]
     Active Substance: LITHIUM
     Dosage: 6 MILLIGRAM, QD
     Route: 048
  130. LITHIUM [Suspect]
     Active Substance: LITHIUM
     Dosage: 2 GRAM
     Route: 065
  131. LITHIUM [Suspect]
     Active Substance: LITHIUM
     Dosage: 1 GRAM
     Route: 048
  132. LITHIUM [Suspect]
     Active Substance: LITHIUM
     Dosage: 2 GRAM
     Route: 065
  133. LITHIUM [Suspect]
     Active Substance: LITHIUM
     Dosage: 1 GRAM
     Route: 048
  134. LITHIUM [Suspect]
     Active Substance: LITHIUM
     Dosage: 1 GRAM
     Route: 065
  135. LITHIUM [Suspect]
     Active Substance: LITHIUM
     Dosage: 1 GRAM
     Route: 065
  136. LITHIUM [Suspect]
     Active Substance: LITHIUM
     Dosage: 2 GRAM
     Route: 048
  137. LITHIUM [Suspect]
     Active Substance: LITHIUM
     Dosage: 1 MILLIGRAM
     Route: 048
  138. LITHIUM [Suspect]
     Active Substance: LITHIUM
     Dosage: 1 GRAM
     Route: 065
  139. LITHIUM [Suspect]
     Active Substance: LITHIUM
     Dosage: 1 GRAM
     Route: 065
  140. LITHIUM [Suspect]
     Active Substance: LITHIUM
     Dosage: 1 GRAM
     Route: 065
  141. LORAZEPAM [Suspect]
     Active Substance: LORAZEPAM
     Indication: Schizophrenia
     Dosage: 1 MILLIGRAM
     Route: 048
  142. LORAZEPAM [Suspect]
     Active Substance: LORAZEPAM
     Dosage: UNK
     Route: 048
  143. LORAZEPAM [Suspect]
     Active Substance: LORAZEPAM
     Dosage: 1 MILLIGRAM
     Route: 048
  144. LORAZEPAM [Suspect]
     Active Substance: LORAZEPAM
     Dosage: 1 MILLIGRAM
     Route: 048
  145. LORAZEPAM [Suspect]
     Active Substance: LORAZEPAM
     Dosage: 1 MILLIGRAM
     Route: 048
  146. LORAZEPAM [Suspect]
     Active Substance: LORAZEPAM
     Dosage: 1 MILLIGRAM
     Route: 048
  147. LORAZEPAM [Suspect]
     Active Substance: LORAZEPAM
     Dosage: 1 MILLIGRAM
     Route: 048
  148. LORAZEPAM [Suspect]
     Active Substance: LORAZEPAM
     Dosage: 1 MILLIGRAM
     Route: 048
  149. LORAZEPAM [Suspect]
     Active Substance: LORAZEPAM
     Dosage: 1 MILLIGRAM
     Route: 048
  150. RISPERIDONE [Suspect]
     Active Substance: RISPERIDONE
     Indication: Schizophrenia
     Dosage: 2 MILLIGRAM, BID
     Route: 048
  151. RISPERIDONE [Suspect]
     Active Substance: RISPERIDONE
     Dosage: 3 MILLIGRAM, BID, 6 MG QD
     Route: 065
  152. RISPERIDONE [Suspect]
     Active Substance: RISPERIDONE
     Dosage: 2 MILLIGRAM
     Route: 048
  153. RISPERIDONE [Suspect]
     Active Substance: RISPERIDONE
     Dosage: 6 MILLIGRAM, BID, 12 MILLIGRAM QD
     Route: 065
  154. RISPERIDONE [Suspect]
     Active Substance: RISPERIDONE
     Dosage: 3 MILLIGRAM, QD
     Route: 048
  155. RISPERIDONE [Suspect]
     Active Substance: RISPERIDONE
     Dosage: 1 MILLIGRAM, BID, 2 MILLIGRAM QD
     Route: 065
  156. RISPERIDONE [Suspect]
     Active Substance: RISPERIDONE
     Dosage: 1 GRAM, QD
     Route: 048
  157. RISPERIDONE [Suspect]
     Active Substance: RISPERIDONE
     Dosage: 1 MILLIGRAM, QD
     Route: 048
  158. RISPERIDONE [Suspect]
     Active Substance: RISPERIDONE
     Dosage: 2 GRAM, QD
     Route: 065
  159. RISPERIDONE [Suspect]
     Active Substance: RISPERIDONE
     Dosage: 3 MILLIGRAM, BID, 6 MG QD
     Route: 048
  160. RISPERIDONE [Suspect]
     Active Substance: RISPERIDONE
     Dosage: 1 GRAM, QD
     Route: 048
  161. RISPERIDONE [Suspect]
     Active Substance: RISPERIDONE
     Dosage: 2 MILLIGRAM, BID, 4 MG QD
     Route: 048
  162. RISPERIDONE [Suspect]
     Active Substance: RISPERIDONE
     Dosage: 3 MILLIGRAM, BID, 6 MG QD
     Route: 048
  163. RISPERIDONE [Suspect]
     Active Substance: RISPERIDONE
     Dosage: 1 MILLIGRAM, QD
     Route: 065
  164. RISPERIDONE [Suspect]
     Active Substance: RISPERIDONE
     Dosage: 3 MILLIGRAM, BID, 6 MG QD
     Route: 048
  165. RISPERIDONE [Suspect]
     Active Substance: RISPERIDONE
     Dosage: 2 MILLIGRAM, BID, 4 MG QD
     Route: 048
  166. RISPERIDONE [Suspect]
     Active Substance: RISPERIDONE
     Dosage: 2 MILLIGRAM, BID, 4 MG QD
     Route: 065
  167. RISPERIDONE [Suspect]
     Active Substance: RISPERIDONE
     Dosage: 2 MILLIGRAM, BID, 4 MG QD
     Route: 065
  168. RISPERIDONE [Suspect]
     Active Substance: RISPERIDONE
     Dosage: 2 MILLIGRAM, BID
     Route: 065
  169. RISPERIDONE [Suspect]
     Active Substance: RISPERIDONE
     Dosage: 2 MILLIGRAM, BID
     Route: 065
  170. RISPERIDONE [Suspect]
     Active Substance: RISPERIDONE
     Dosage: 1 GRAM, QD
     Route: 048
  171. RISPERIDONE [Suspect]
     Active Substance: RISPERIDONE
     Dosage: 3 MILLIGRAM, BID, 6 MG QD
     Route: 048
  172. RISPERIDONE [Suspect]
     Active Substance: RISPERIDONE
     Dosage: 1 GRAM, QD
     Route: 065
  173. RISPERIDONE [Suspect]
     Active Substance: RISPERIDONE
     Dosage: 3 MILLIGRAM, BID, 6 MG QD
     Route: 048
  174. RISPERIDONE [Suspect]
     Active Substance: RISPERIDONE
     Dosage: 1 MILLIGRAM, QD
     Route: 065
  175. RISPERIDONE [Suspect]
     Active Substance: RISPERIDONE
     Dosage: 3 MILLIGRAM, BID, 6 MG QD
     Route: 065
  176. RISPERIDONE [Suspect]
     Active Substance: RISPERIDONE
     Dosage: 1 MILLIGRAM, QD
     Route: 065
  177. RISPERIDONE [Suspect]
     Active Substance: RISPERIDONE
     Dosage: 1 GRAM, QD
     Route: 065
  178. RISPERIDONE [Suspect]
     Active Substance: RISPERIDONE
     Dosage: 1 MILLIGRAM, QD
     Route: 065
  179. RISPERIDONE [Suspect]
     Active Substance: RISPERIDONE
     Dosage: 2 MILLIGRAM, BID
     Route: 065
  180. RISPERIDONE [Suspect]
     Active Substance: RISPERIDONE
     Dosage: 1 MILLIGRAM, QD
     Route: 065
  181. RISPERIDONE [Suspect]
     Active Substance: RISPERIDONE
     Dosage: 2 MILLIGRAM, BID
     Route: 065
  182. RISPERIDONE [Suspect]
     Active Substance: RISPERIDONE
     Dosage: 3 MILLIGRAM, BID, 6 MG QD
     Route: 048
  183. RISPERIDONE [Suspect]
     Active Substance: RISPERIDONE
     Dosage: 3 MILLIGRAM, BID, 6 MG QD
     Route: 065
  184. RISPERIDONE [Suspect]
     Active Substance: RISPERIDONE
     Dosage: 3 MILLIGRAM, BID, 6 MG QD
     Route: 065
  185. RISPERIDONE [Suspect]
     Active Substance: RISPERIDONE
     Dosage: 2 MILLIGRAM, BID
     Route: 065
  186. RISPERIDONE [Suspect]
     Active Substance: RISPERIDONE
     Dosage: 2 MILLIGRAM, BID
     Route: 065
  187. RISPERIDONE [Suspect]
     Active Substance: RISPERIDONE
     Dosage: 1 GRAM, QD
     Route: 065
  188. RISPERIDONE [Suspect]
     Active Substance: RISPERIDONE
     Dosage: 1 MILLIGRAM, QD
     Route: 065
  189. RISPERIDONE [Suspect]
     Active Substance: RISPERIDONE
     Dosage: 3 MILLIGRAM, BID, 6 MG QD
     Route: 065
  190. RISPERIDONE [Suspect]
     Active Substance: RISPERIDONE
     Dosage: 1 GRAM, QD
     Route: 065
  191. TRASTUZUMAB [Suspect]
     Active Substance: TRASTUZUMAB
     Indication: Breast cancer metastatic
     Dosage: 1827 MILLIGRAM (QWK)
     Route: 042
     Dates: start: 20150930
  192. TRASTUZUMAB [Suspect]
     Active Substance: TRASTUZUMAB
     Dosage: 1218 MILLIGRAM
     Route: 042
     Dates: start: 20151130
  193. TRASTUZUMAB [Suspect]
     Active Substance: TRASTUZUMAB
     Dosage: 1218 MILLIGRAM; INFUSION ONCE IN 3 WEEKS (Q3WK)
     Route: 042
     Dates: start: 20150930
  194. TRASTUZUMAB [Suspect]
     Active Substance: TRASTUZUMAB
     Dosage: 840 MILLIGRAM; ONCE IN 3 WEEKS (Q3WK)
     Route: 042
  195. TRASTUZUMAB [Suspect]
     Active Substance: TRASTUZUMAB
     Dosage: 609 MILLIGRAM; ONCE IN 2 WEEKS (2/W)
     Route: 042
  196. TRASTUZUMAB [Suspect]
     Active Substance: TRASTUZUMAB
     Dosage: 420 MG, Q3W (CUMULATIVE DOSE: 820.83 MG)
     Route: 042
  197. TRASTUZUMAB [Suspect]
     Active Substance: TRASTUZUMAB
     Dosage: 609 MILLIGRAM; INFUSION ONCE IN 3 WEEKS (Q3WK)
     Route: 042
     Dates: start: 20150930
  198. TRASTUZUMAB [Suspect]
     Active Substance: TRASTUZUMAB
     Dosage: 1218 MILLIGRAM, Q.W.
     Route: 065
     Dates: start: 20150930
  199. PACLITAXEL [Suspect]
     Active Substance: PACLITAXEL
     Indication: Breast cancer metastatic
     Dosage: 150 MILLIGRAM, QD, INJECTION
     Route: 042
     Dates: start: 20151223, end: 20151223
  200. PACLITAXEL [Suspect]
     Active Substance: PACLITAXEL
     Dosage: 150 MILLIGRAM, Q.W. (CUMULATIVE DOSE: 428.57 MG)
     Route: 042
     Dates: start: 20151111, end: 20151222
  201. PACLITAXEL [Suspect]
     Active Substance: PACLITAXEL
     Dosage: UNK UNK, Q.W.; CUMULATIVE DOSE: 428.57 MG
     Route: 065
     Dates: start: 20151111, end: 20151222
  202. PACLITAXEL [Suspect]
     Active Substance: PACLITAXEL
     Dosage: 120 MILLIGRAM, Q.W.; CUMULATIVE DOSE: 377.142
     Route: 042
     Dates: start: 20151223, end: 20151223
  203. PACLITAXEL [Suspect]
     Active Substance: PACLITAXEL
     Dosage: 120 MILLIGRAM, Q.W.; 171.428571
     Route: 042
     Dates: start: 20151111, end: 20151222
  204. PERTUZUMAB [Suspect]
     Active Substance: PERTUZUMAB
     Indication: Breast cancer metastatic
     Dosage: 2520 MILLIGRAM Q3W (CUMULATIVE DOSE: 2481.6667 MG)
     Route: 065
     Dates: start: 20150930
  205. PERTUZUMAB [Suspect]
     Active Substance: PERTUZUMAB
     Dosage: 1 MILLIGRAM, QWK
     Route: 065
  206. PERTUZUMAB [Suspect]
     Active Substance: PERTUZUMAB
     Dosage: 1260 MILLIGRAM, Q.W.(420 MG, Q3W)
     Route: 065
     Dates: start: 20151021
  207. PERTUZUMAB [Suspect]
     Active Substance: PERTUZUMAB
     Dosage: 420 MILLIGRAM (Q3W) (CUMULATIVE DOSE: 77161.6666))
     Route: 048
  208. PERTUZUMAB [Suspect]
     Active Substance: PERTUZUMAB
     Dosage: 840 MILLIGRAM; ONCE IN THREE WEEKS; 1281.66666 ( Q3WK), INJECTION
     Route: 065
     Dates: start: 20151021
  209. PERTUZUMAB [Suspect]
     Active Substance: PERTUZUMAB
     Dosage: UNK (QWK)
     Route: 065
  210. PERTUZUMAB [Suspect]
     Active Substance: PERTUZUMAB
     Dosage: 840 MILLIGRAM; Q3W; 1281.66666, INJECTION
     Route: 065
     Dates: start: 20150930
  211. PERTUZUMAB [Suspect]
     Active Substance: PERTUZUMAB
     Dosage: 420 MILLIGRAM; ONCE IN THREE WEEKS
     Route: 065
     Dates: start: 20151021
  212. PERTUZUMAB [Suspect]
     Active Substance: PERTUZUMAB
     Dosage: 2 UNIT, Q.W. INJECTION
     Route: 042
     Dates: start: 20151021
  213. DOCETAXEL [Suspect]
     Active Substance: DOCETAXEL
     Indication: Breast cancer metastatic
     Dosage: 220 MILLIGRAM (HOSPIRA ENTERPRISES)
     Route: 065
     Dates: start: 20150930, end: 20151021
  214. DOCETAXEL [Suspect]
     Active Substance: DOCETAXEL
     Dosage: 400 MILLIGRAM 400 MG, CYCLIC (400 MG, BIWEEKLY)
     Route: 048
     Dates: start: 20040217, end: 20040601
  215. DOCETAXEL [Suspect]
     Active Substance: DOCETAXEL
     Dosage: 110 MILLIGRAM
     Route: 065
     Dates: start: 20151222
  216. DOCETAXEL [Suspect]
     Active Substance: DOCETAXEL
     Dosage: 220 MILLIGRAM (HOSPIRA ENTERPRISES)
     Route: 065
     Dates: start: 20151222
  217. DOCETAXEL [Suspect]
     Active Substance: DOCETAXEL
     Dosage: 110 MILLIGRAM Q3W,(HOSPIRA ENTERPRISES, CUMULATIVE DOSE: 324.98, SOLUTION FOR INJECTION
     Route: 042
     Dates: start: 20150930, end: 20151021
  218. HALOPERIDOL DECANOATE [Suspect]
     Active Substance: HALOPERIDOL DECANOATE
     Indication: Schizophrenia
     Dosage: 5 MILLIGRAM, BID
     Route: 065
  219. HALOPERIDOL DECANOATE [Suspect]
     Active Substance: HALOPERIDOL DECANOATE
     Dosage: 10 MILLIGRAM, QD
     Route: 065
  220. HALOPERIDOL DECANOATE [Suspect]
     Active Substance: HALOPERIDOL DECANOATE
     Dosage: 10 MILLIGRAM, BID
     Route: 065
  221. HALOPERIDOL DECANOATE [Suspect]
     Active Substance: HALOPERIDOL DECANOATE
     Dosage: 40 MILLIGRAM, QD
     Route: 065
  222. HALOPERIDOL DECANOATE [Suspect]
     Active Substance: HALOPERIDOL DECANOATE
     Dosage: 10 MILLIGRAM, QD
     Route: 065
  223. HALOPERIDOL DECANOATE [Suspect]
     Active Substance: HALOPERIDOL DECANOATE
     Dosage: 40 MILLIGRAM, QD
     Route: 065
  224. HALOPERIDOL DECANOATE [Suspect]
     Active Substance: HALOPERIDOL DECANOATE
     Dosage: 5 MILLIGRAM, BID
     Route: 065
  225. HALOPERIDOL DECANOATE [Suspect]
     Active Substance: HALOPERIDOL DECANOATE
     Dosage: 40 MILLIGRAM, QD
     Route: 065
  226. HALOPERIDOL DECANOATE [Suspect]
     Active Substance: HALOPERIDOL DECANOATE
     Dosage: 10 MILLIGRAM, QD
     Route: 065
  227. HALOPERIDOL DECANOATE [Suspect]
     Active Substance: HALOPERIDOL DECANOATE
     Dosage: 10 MILLIGRAM, QD
     Route: 065
  228. HALOPERIDOL DECANOATE [Suspect]
     Active Substance: HALOPERIDOL DECANOATE
     Dosage: 10 MILLIGRAM, BID
     Route: 065
  229. HALOPERIDOL DECANOATE [Suspect]
     Active Substance: HALOPERIDOL DECANOATE
     Dosage: 20 MILLIGRAM, QD (10 MILLIGRAM, BID)
     Route: 065
  230. HALOPERIDOL DECANOATE [Suspect]
     Active Substance: HALOPERIDOL DECANOATE
     Dosage: 5 MILLIGRAM, QD
     Route: 065
  231. HALOPERIDOL DECANOATE [Suspect]
     Active Substance: HALOPERIDOL DECANOATE
     Dosage: 10 MILLIGRAM, QD
     Route: 065
  232. HALOPERIDOL DECANOATE [Suspect]
     Active Substance: HALOPERIDOL DECANOATE
     Dosage: 10 MILLIGRAM, QD (5 MG, BID)
     Route: 065
  233. HALOPERIDOL DECANOATE [Suspect]
     Active Substance: HALOPERIDOL DECANOATE
     Dosage: 40 MILLIGRAM, QD ( (20 MG, BID)
     Route: 065
  234. HALOPERIDOL DECANOATE [Suspect]
     Active Substance: HALOPERIDOL DECANOATE
     Dosage: 10 MILLIGRAM, BID
     Route: 065
  235. HALOPERIDOL DECANOATE [Suspect]
     Active Substance: HALOPERIDOL DECANOATE
     Dosage: 10 MILLIGRAM, BID
     Route: 065
  236. HALOPERIDOL DECANOATE [Suspect]
     Active Substance: HALOPERIDOL DECANOATE
     Dosage: 10 MILLIGRAM, BID
     Route: 065
  237. HALOPERIDOL DECANOATE [Suspect]
     Active Substance: HALOPERIDOL DECANOATE
     Dosage: 20 MILLIGRAM, QD (10 MILLIGRAM, BID)
     Route: 065
  238. HALOPERIDOL DECANOATE [Suspect]
     Active Substance: HALOPERIDOL DECANOATE
     Dosage: 10 MILLIGRAM, QD
     Route: 065
  239. HALOPERIDOL DECANOATE [Suspect]
     Active Substance: HALOPERIDOL DECANOATE
     Dosage: 20 MILLIGRAM, QD (10 MILLIGRAM, BID)
     Route: 065
  240. HALOPERIDOL DECANOATE [Suspect]
     Active Substance: HALOPERIDOL DECANOATE
     Dosage: 5 MILLIGRAM, BID
     Route: 065
  241. ZUCLOPENTHIXOL [Suspect]
     Active Substance: ZUCLOPENTHIXOL
     Indication: Product used for unknown indication
     Dosage: 400 MILLIGRAM, BIW CYCLICAL (400 MG, BIWEEKLY)
     Route: 048
     Dates: start: 20040217, end: 20040601
  242. ZUCLOPENTHIXOL [Suspect]
     Active Substance: ZUCLOPENTHIXOL
     Dosage: 300 MILLIGRAM, Q.W.
     Route: 065
  243. ZUCLOPENTHIXOL [Suspect]
     Active Substance: ZUCLOPENTHIXOL
     Dosage: 300 MILLIGRAM, Q.W.
     Route: 030
     Dates: start: 20091018
  244. ZUCLOPENTHIXOL [Suspect]
     Active Substance: ZUCLOPENTHIXOL
     Dosage: 400 MILLIGRAM, CYCLICAL, (400 MG, CYCLIC (400 MG, BIWEEKLY)
     Route: 048
  245. RISPERIDONE [Suspect]
     Active Substance: RISPERIDONE
     Indication: Schizophrenia
     Dosage: 3 MILLIGRAM, QD
     Route: 048
  246. RISPERIDONE [Suspect]
     Active Substance: RISPERIDONE
     Dosage: 2 MILLIGRAM, QD
     Route: 048
  247. RISPERIDONE [Suspect]
     Active Substance: RISPERIDONE
     Dosage: 4 MILLIGRAM, QD
     Route: 048
  248. RISPERIDONE [Suspect]
     Active Substance: RISPERIDONE
     Dosage: 1 MILLIGRAM, QD
     Route: 048
  249. RISPERIDONE [Suspect]
     Active Substance: RISPERIDONE
     Dosage: 6 MILLIGRAM, QD
     Route: 048
  250. RISPERIDONE [Suspect]
     Active Substance: RISPERIDONE
     Dosage: 1 GRAM, QD
     Route: 048
  251. RISPERIDONE [Suspect]
     Active Substance: RISPERIDONE
     Dosage: 2 MILLIGRAM, BID
     Route: 048
  252. RISPERIDONE [Suspect]
     Active Substance: RISPERIDONE
     Dosage: 3 MILLIGRAM, BID
     Route: 048
  253. RISPERIDONE [Suspect]
     Active Substance: RISPERIDONE
     Dosage: 4 MILLIGRAM, QD
     Route: 048
     Dates: start: 1998
  254. RISPERIDONE [Suspect]
     Active Substance: RISPERIDONE
     Dosage: 2 MILLIGRAM
     Route: 048
  255. DENOSUMAB [Suspect]
     Active Substance: DENOSUMAB
     Indication: Metastases to bone
     Dosage: 120 MILLIGRAM (EVERY 9 WEEKS/30 SEP 2015120 MG,(CUMULATIVE DOSE: 118.174))
     Route: 058
     Dates: start: 20150930
  256. DENOSUMAB [Suspect]
     Active Substance: DENOSUMAB
     Indication: Gastrooesophageal reflux disease
     Dosage: 120 MILLIGRAM (625 MG, QID)
     Route: 058
  257. DENOSUMAB [Suspect]
     Active Substance: DENOSUMAB
     Route: 065
  258. DENOSUMAB [Suspect]
     Active Substance: DENOSUMAB
     Indication: Gastrooesophageal reflux disease
     Dosage: 120 MILLIGRAM (EVERY 9 WEEKS)
     Route: 065
     Dates: start: 20150930
  259. DENOSUMAB [Suspect]
     Active Substance: DENOSUMAB
     Indication: Metastases to bone
     Dosage: 625 MILLIGRAM, QID
     Route: 065
  260. DENOSUMAB [Suspect]
     Active Substance: DENOSUMAB
     Dosage: 120 MILLIGRAM, QD
     Route: 058
     Dates: start: 20150930
  261. PIPERACILLIN SODIUM\TAZOBACTAM SODIUM [Suspect]
     Active Substance: PIPERACILLIN SODIUM\TAZOBACTAM SODIUM
     Indication: Febrile neutropenia
     Dosage: UNK
     Route: 065
     Dates: start: 20151121, end: 201511
  262. CHLORPHENIRAMINE MALEATE [Concomitant]
     Active Substance: CHLORPHENIRAMINE MALEATE
     Indication: Product used for unknown indication
     Dosage: 10 MILLIGRAM, Q.W. (CUMULATIVE DOSE 28.57)
     Route: 058
     Dates: start: 20151111
  263. CHOLECALCIFEROL [Concomitant]
     Active Substance: CHOLECALCIFEROL
     Indication: Product used for unknown indication
     Dosage: 2 DOSAGE FORM, QD, 2 MG/3ML, DAILY
     Route: 048
  264. CALCIUM\CHOLECALCIFEROL [Concomitant]
     Active Substance: CALCIUM\CHOLECALCIFEROL
     Indication: Product used for unknown indication
     Dosage: 2 DOSAGE FORM, QD
     Route: 048
     Dates: start: 20091018
  265. CALCIUM\CHOLECALCIFEROL [Concomitant]
     Active Substance: CALCIUM\CHOLECALCIFEROL
     Dosage: 2 DOSAGE FORM, QD (DOSE FORM: 245)
     Route: 048
  266. AMOXICILLIN\CLAVULANATE POTASSIUM [Concomitant]
     Active Substance: AMOXICILLIN\CLAVULANATE POTASSIUM
     Indication: Febrile neutropenia
     Dosage: 2500 MILLIGRAM, QD
     Route: 065
     Dates: start: 20151122, end: 20151125
  267. AMOXICILLIN\CLAVULANATE POTASSIUM [Concomitant]
     Active Substance: AMOXICILLIN\CLAVULANATE POTASSIUM
     Dosage: 120 MILLIGRAM; ONCE IN EVERY 9 WEEKS
     Route: 065
  268. AMOXICILLIN\CLAVULANATE POTASSIUM [Concomitant]
     Active Substance: AMOXICILLIN\CLAVULANATE POTASSIUM
     Dosage: 625 MILLIGRAM (120 MG, OTHER (EVERY 9 WEEKS))
     Route: 065
     Dates: start: 20151111
  269. AMOXICILLIN\CLAVULANATE POTASSIUM [Concomitant]
     Active Substance: AMOXICILLIN\CLAVULANATE POTASSIUM
     Dosage: 625 MILLIGRAM, QID, 2500 MILLIGRAM QD
     Route: 065
     Dates: start: 20151122, end: 20151215
  270. AMOXICILLIN\CLAVULANATE POTASSIUM [Concomitant]
     Active Substance: AMOXICILLIN\CLAVULANATE POTASSIUM
     Dosage: 625 MILLIGRAM; (EVERY 0.33 DAYS)
     Route: 065
     Dates: start: 20151122, end: 20151125
  271. DULOXETINE [Concomitant]
     Active Substance: DULOXETINE
     Indication: Product used for unknown indication
     Dosage: UNK
     Route: 065
  272. GENTAMICIN [Concomitant]
     Active Substance: GENTAMICIN
     Indication: Febrile neutropenia
     Dosage: UNK
     Route: 042
     Dates: start: 20151121, end: 201511
  273. MIRTAZAPINE [Concomitant]
     Active Substance: MIRTAZAPINE
     Indication: Product used for unknown indication
     Dosage: 15 MILLIGRAM, QD
     Route: 048
     Dates: start: 201510
  274. MIRTAZAPINE [Concomitant]
     Active Substance: MIRTAZAPINE
     Indication: Product used for unknown indication
     Dosage: 30MG, BID
     Route: 065
  275. MORPHINE [Concomitant]
     Active Substance: MORPHINE
     Indication: Pain
     Dosage: 15 MILLIGRAM, QD
     Route: 048
     Dates: start: 201510
  276. MORPHINE [Concomitant]
     Active Substance: MORPHINE
     Dosage: 30 MILLIGRAM ((EVERY 0.5 DAY)
     Route: 048
     Dates: start: 201509
  277. MORPHINE [Concomitant]
     Active Substance: MORPHINE
     Dosage: 60 MILLIGRAM, QD
     Route: 065
     Dates: start: 201509
  278. MORPHINE SULFATE [Concomitant]
     Active Substance: MORPHINE SULFATE
     Indication: Product used for unknown indication
     Dosage: 30 MILLIGRAM, BID (EVERY 0.5 DAY)
     Route: 065
     Dates: start: 201509
  279. MORPHINE SULFATE [Concomitant]
     Active Substance: MORPHINE SULFATE
     Dosage: 10 MILLIGRAM
     Route: 065
     Dates: start: 201509
  280. PREGABALIN [Concomitant]
     Active Substance: PREGABALIN
     Indication: Product used for unknown indication
     Dosage: 150 MILLIGRAM, QD (75 MG, BID)
     Route: 048
     Dates: start: 201509
  281. PREGABALIN [Concomitant]
     Active Substance: PREGABALIN
     Dosage: 75 MILLIGRAM, BID; EVERY 0.5 DAY
     Route: 048
     Dates: start: 201509
  282. RANITIDINE [Concomitant]
     Active Substance: RANITIDINE
     Indication: Gastrooesophageal reflux disease
     Dosage: 150 MILLIGRAM, Q.W.
     Route: 065
  283. RANITIDINE [Concomitant]
     Active Substance: RANITIDINE
     Dosage: 75 MILLIGRAM, Q.W.
     Route: 058
     Dates: start: 20151111
  284. RANITIDINE [Concomitant]
     Active Substance: RANITIDINE
     Dosage: 50 MILLIGRAM, Q.W.
     Route: 058
  285. RANITIDINE [Concomitant]
     Active Substance: RANITIDINE
     Dosage: 50 MILLIGRAM, Q.W.
     Route: 065
     Dates: start: 20151111
  286. TAZOBACTAM SODIUM [Concomitant]
     Active Substance: TAZOBACTAM SODIUM
     Indication: Febrile neutropenia
     Dosage: UNK
     Route: 065
     Dates: start: 20151121, end: 201511

REACTIONS (37)
  - Neoplasm progression [Fatal]
  - Delusion of grandeur [Fatal]
  - Hallucination, auditory [Fatal]
  - Affective disorder [Fatal]
  - Lymphocyte count decreased [Fatal]
  - Psychotic disorder [Fatal]
  - Extrapyramidal disorder [Fatal]
  - Platelet count decreased [Fatal]
  - Leukopenia [Fatal]
  - Neutropenia [Fatal]
  - Fatigue [Fatal]
  - Lymphocyte count abnormal [Fatal]
  - Neutrophil count increased [Fatal]
  - SARS-CoV-2 test positive [Fatal]
  - Schizophrenia [Fatal]
  - COVID-19 [Fatal]
  - Seizure [Fatal]
  - Neuropathy peripheral [Fatal]
  - Fatigue [Fatal]
  - Fatigue [Fatal]
  - Disease progression [Fatal]
  - Rhinalgia [Fatal]
  - Cellulitis [Fatal]
  - Alopecia [Fatal]
  - Mucosal inflammation [Fatal]
  - Dyspepsia [Fatal]
  - Nausea [Fatal]
  - Diarrhoea [Fatal]
  - Leukocytosis [Fatal]
  - Neutrophil count decreased [Fatal]
  - Extrapyramidal disorder [Fatal]
  - Thrombocytopenia [Fatal]
  - Hospitalisation [Fatal]
  - Off label use [Fatal]
  - Incorrect dose administered [Fatal]
  - Overdose [Fatal]
  - Intentional product misuse [Fatal]

NARRATIVE: CASE EVENT DATE: 20151101
